FAERS Safety Report 4427409-4 (Version None)
Quarter: 2004Q3

REPORT INFORMATION
  Report Type: 
  Country: None (occurrence: None)
  Receive Date: 20040813
  Receipt Date: 20040811
  Transmission Date: 20050211
  Serious: Yes (Other)
  Sender: FDA-Public Use
  Company Number: 002117

PATIENT
  Sex: Female

DRUGS (5)
  1. MEDROXYPROGESTERONE ACETATE [Suspect]
     Indication: MENOPAUSAL SYMPTOMS
  2. ESTRADIOL [Suspect]
  3. PROVERA [Suspect]
  4. ESTRATAB [Suspect]
  5. ESTRACE [Suspect]

REACTIONS (1)
  - BREAST CANCER [None]
